FAERS Safety Report 9708207 (Version 1)
Quarter: 2013Q4

REPORT INFORMATION
  Report Type: Other
  Country: GB (occurrence: GB)
  Receive Date: 20131125
  Receipt Date: 20131125
  Transmission Date: 20140711
  Serious: Yes (Life-Threatening, Hospitalization)
  Sender: FDA-Public Use
  Company Number: GB-PERRIGO-13GB012072

PATIENT
  Age: 5 Day
  Sex: Male
  Weight: .87 kg

DRUGS (3)
  1. IBUPROFEN 20 MG/ML 16028/0034 [Suspect]
     Indication: PATENT DUCTUS ARTERIOSUS
     Dosage: UNK
     Route: 065
     Dates: start: 20131108, end: 20131110
  2. BENZYLPENICILLIN [Concomitant]
     Indication: PRODUCT USED FOR UNKNOWN INDICATION
     Dosage: UNK
     Route: 065
  3. GENTAMICIN [Concomitant]
     Indication: PRODUCT USED FOR UNKNOWN INDICATION
     Dosage: UNK
     Route: 065

REACTIONS (1)
  - Intestinal perforation [Recovered/Resolved with Sequelae]
